FAERS Safety Report 4618560-4 (Version None)
Quarter: 2005Q1

REPORT INFORMATION
  Report Type: 
  Country: None (occurrence: None)
  Receive Date: 20050324
  Receipt Date: 20050309
  Transmission Date: 20050727
  Serious: Yes (Other)
  Sender: FDA-Public Use
  Company Number: USA040669379

PATIENT
  Age: 79 Year
  Sex: Female

DRUGS (6)
  1. EVISTA [Suspect]
     Indication: OSTEOPOROSIS PROPHYLAXIS
     Dates: start: 20040604, end: 20050201
  2. VITAMINS [Concomitant]
  3. ENALAPRIL [Concomitant]
  4. LEVOXYL [Concomitant]
  5. GLUOCPHAGE (METFORMIN HYDROCHLORIDE) [Concomitant]
  6. SYNTHROID [Concomitant]

REACTIONS (9)
  - CONDITION AGGRAVATED [None]
  - DIZZINESS [None]
  - DRY SKIN [None]
  - ERYTHEMA [None]
  - FEELING HOT [None]
  - OEDEMA PERIPHERAL [None]
  - SKIN DISORDER [None]
  - TRANSIENT ISCHAEMIC ATTACK [None]
  - VERTIGO [None]
